FAERS Safety Report 9586399 (Version 1)
Quarter: 2013Q4

REPORT INFORMATION
  Report Type: Spontaneous
  Country: CH (occurrence: CH)
  Receive Date: 20131003
  Receipt Date: 20131003
  Transmission Date: 20140711
  Serious: Yes (Other)
  Sender: FDA-Public Use
  Company Number: CH-JNJFOC-20131000216

PATIENT
  Age: 74 Year
  Sex: Female

DRUGS (5)
  1. XARELTO [Suspect]
     Indication: ATRIAL FIBRILLATION
     Route: 048
     Dates: start: 20130709, end: 20130815
  2. XARELTO [Suspect]
     Indication: CEREBROVASCULAR ACCIDENT PROPHYLAXIS
     Route: 048
     Dates: start: 20130709, end: 20130815
  3. SPIRICORT [Concomitant]
     Route: 048
     Dates: start: 2010
  4. BILOL [Concomitant]
     Route: 048
     Dates: start: 20130709
  5. CALCIMAGON-D 3 [Concomitant]
     Route: 048

REACTIONS (1)
  - Diarrhoea [Recovered/Resolved]
